FAERS Safety Report 7872965 (Version 2)
Quarter: 2013Q2

REPORT INFORMATION
  Report Type: Spontaneous
  Country: US (occurrence: US)
  Receive Date: 20110325
  Receipt Date: 20130422
  Transmission Date: 20140414
  Serious: Yes (Other)
  Sender: FDA-Public Use
  Company Number: US-RB-018420-10

PATIENT
  Age: 26 Year
  Sex: Female

DRUGS (3)
  1. SUBOXONE UNSPECIFIED [Suspect]
     Indication: DRUG DEPENDENCE
     Route: 065
     Dates: start: 2010, end: 201011
  2. OXYCONTIN [Suspect]
     Indication: PRODUCT USED FOR UNKNOWN INDICATION
     Dosage: DOSING INFORMATION UNKNOWN
     Route: 065
  3. NICOTINE [Suspect]
     Indication: PRODUCT USED FOR UNKNOWN INDICATION
     Dosage: UNKNOWN DOSING DETAILS
     Route: 065

REACTIONS (4)
  - Exposure during pregnancy [Recovered/Resolved]
  - Oligohydramnios [Recovered/Resolved]
  - Substance abuse [Recovered/Resolved]
  - Premature delivery [Recovered/Resolved]
